FAERS Safety Report 18239675 (Version 3)
Quarter: 2020Q4

REPORT INFORMATION
  Report Type: Spontaneous
  Country: CN (occurrence: CN)
  Receive Date: 20200908
  Receipt Date: 20201002
  Transmission Date: 20210113
  Serious: Yes (Hospitalization, Other)
  Sender: FDA-Public Use
  Company Number: CN-REGENERON PHARMACEUTICALS, INC.-2020-73500

PATIENT

DRUGS (2)
  1. EYLEA [Suspect]
     Active Substance: AFLIBERCEPT
     Dosage: LEFT EYE, ONCE
     Route: 031
     Dates: start: 20200826, end: 20200826
  2. EYLEA [Suspect]
     Active Substance: AFLIBERCEPT
     Indication: DIABETIC RETINAL OEDEMA
     Dosage: LEFT EYE, ONCE
     Route: 031
     Dates: start: 202007, end: 202007

REACTIONS (8)
  - Eye disorder [Unknown]
  - Blindness [Unknown]
  - Iris adhesions [Unknown]
  - Parophthalmia [Unknown]
  - Vitreous disorder [Unknown]
  - Retinal haemorrhage [Unknown]
  - Vitreous opacities [Unknown]
  - Retinal exudates [Unknown]

NARRATIVE: CASE EVENT DATE: 2020
